FAERS Safety Report 8440314 (Version 3)
Quarter: 2013Q2

REPORT INFORMATION
  Report Type: Report from Study
  Country: ES (occurrence: ES)
  Receive Date: 20120305
  Receipt Date: 20130607
  Transmission Date: 20140414
  Serious: Yes (Life-Threatening)
  Sender: FDA-Public Use
  Company Number: ES-COVIDIEN/TYCO HEALTHCARE/MALLINCKRODT-T201200778

PATIENT
  Age: 69 Year
  Sex: Female

DRUGS (9)
  1. OPTIRAY [Suspect]
     Indication: COMPUTERISED TOMOGRAM
     Dosage: 120 ML, SINGLE
     Route: 042
     Dates: start: 20100503, end: 20100503
  2. RASILEZ HCT [Concomitant]
  3. EUTIROX [Concomitant]
  4. LIPOSCLER [Concomitant]
  5. EZETROL [Concomitant]
  6. LEXATIN                            /00424801/ [Concomitant]
  7. SERETIDE [Concomitant]
  8. POLARAMINE [Concomitant]
     Indication: PREMEDICATION
     Dosage: 5 MG SINGLE
     Route: 030
     Dates: start: 20100503, end: 20100503
  9. PREDNISONE [Concomitant]
     Indication: PREMEDICATION
     Dosage: 50 MG GIVEN 13, 7 AND 1 HOUR PRIOR
     Route: 048
     Dates: start: 20100502, end: 20100503

REACTIONS (2)
  - Urticaria [Recovered/Resolved]
  - Dyspnoea [Recovered/Resolved]
